FAERS Safety Report 9096586 (Version 2)
Quarter: 2013Q3

REPORT INFORMATION
  Report Type: Spontaneous
  Country: US (occurrence: None)
  Receive Date: 20130124
  Receipt Date: 20130904
  Transmission Date: 20140515
  Serious: Yes (Hospitalization)
  Sender: FDA-Public Use
  Company Number: 2012STPI000792

PATIENT
  Age: 11 Year
  Sex: Male

DRUGS (15)
  1. ONCASPAR [Suspect]
     Indication: LYMPHOCYTIC LEUKAEMIA
     Dosage: 2500 IU/M2, X1, INTRAVENOUS
     Route: 042
     Dates: start: 20121221, end: 20121221
  2. METHYLPREDNISOLONE [Suspect]
     Indication: ACUTE LYMPHOCYTIC LEUKAEMIA
     Route: 042
     Dates: start: 20121218, end: 20130111
  3. VINCRISTINE SULFATE [Suspect]
     Indication: ACUTE LYMPHOCYTIC LEUKAEMIA
     Route: 042
     Dates: start: 20121218, end: 20130108
  4. DOXORUBICIN HYDROCHLORIDE [Suspect]
     Indication: ACUTE LYMPHOCYTIC LEUKAEMIA
     Dosage: X2
     Route: 042
     Dates: start: 20121218, end: 20121219
  5. DEXRAZOXANE [Suspect]
     Indication: ACUTE LYMPHOCYTIC LEUKAEMIA
     Dosage: X2
     Route: 042
     Dates: start: 20121218, end: 20121219
  6. METHOTREXATE (METHOTREXATE) [Suspect]
     Indication: ACUTE LYMPHOCYTIC LEUKAEMIA
     Route: 037
     Dates: start: 20121220, end: 20121220
  7. CYTARABINE (CYTARABINE) [Suspect]
     Indication: ACUTE LYMPHOCYTIC LEUKAEMIA
     Route: 037
     Dates: start: 20121231, end: 20121231
  8. HYDROCORTISONE [Suspect]
     Indication: ACUTE LYMPHOCYTIC LEUKAEMIA
     Route: 037
     Dates: start: 20121231, end: 20121231
  9. FLAGYL (METRONIDAZOLE) [Concomitant]
  10. FLUCONAZOLE (FLUCONAZOLE) [Concomitant]
  11. VALACYCLOVIR HYDROCHLORIDE) [Concomitant]
  12. ZOSYN (PIPERACILLIN SODIUM, TAZOBACTAM SODIUM) [Concomitant]
  13. VANCOMYCIN HCL (VANCOMYCIN HYDROCHLORIDE) [Concomitant]
  14. MORPHINE SULFATE (MORPHINE SULFATE) [Concomitant]
  15. ACETAMINOPHEN (PARACETAMOL) [Concomitant]

REACTIONS (6)
  - Grand mal convulsion [None]
  - Hypertension [None]
  - Posterior reversible encephalopathy syndrome [None]
  - Respiratory depression [None]
  - Systemic candida [None]
  - Platelet count decreased [None]
